FAERS Safety Report 12395119 (Version 3)
Quarter: 2017Q2

REPORT INFORMATION
  Report Type: Spontaneous
  Country: US (occurrence: US)
  Receive Date: 20160523
  Receipt Date: 20170525
  Transmission Date: 20170830
  Serious: No
  Sender: FDA-Public Use
  Company Number: US-ACTELION-A-US2015-119888

PATIENT
  Age: 46 Year
  Sex: Male
  Weight: 63.49 kg

DRUGS (3)
  1. COUMADIN [Concomitant]
     Active Substance: WARFARIN SODIUM
  2. VELETRI [Suspect]
     Active Substance: EPOPROSTENOL
     Indication: PULMONARY ARTERIAL HYPERTENSION
     Dosage: 107 NG/KG, PER MIN
     Route: 042
     Dates: start: 20150217
  3. REVATIO [Concomitant]
     Active Substance: SILDENAFIL CITRATE

REACTIONS (4)
  - Sinusitis [Unknown]
  - Pain in jaw [Unknown]
  - Upper respiratory tract infection [Unknown]
  - Diarrhoea [Unknown]
